FAERS Safety Report 11309845 (Version 6)
Quarter: 2015Q4

REPORT INFORMATION
  Report Type: Report from Study
  Country: US (occurrence: US)
  Receive Date: 20150724
  Receipt Date: 20151215
  Transmission Date: 20160304
  Serious: Yes (Death, Life-Threatening, Hospitalization, Other)
  Sender: FDA-Public Use
  Company Number: US-TEVA-580247USA

PATIENT
  Age: 47 Year
  Sex: Male
  Weight: 98 kg

DRUGS (25)
  1. ABT-199 [Suspect]
     Active Substance: VENETOCLAX
     Indication: NON-HODGKIN^S LYMPHOMA REFRACTORY
     Dosage: 800 MILLIGRAM DAILY;
     Route: 048
     Dates: start: 20150610
  2. OXYCODONE [Concomitant]
     Active Substance: OXYCODONE
     Dosage: 45 MILLIGRAM DAILY;
     Dates: start: 20150615
  3. ACYCLOVIR. [Concomitant]
     Active Substance: ACYCLOVIR
     Indication: INFECTION PROPHYLAXIS
     Route: 048
     Dates: start: 20150601
  4. GABAPENTIN. [Concomitant]
     Active Substance: GABAPENTIN
     Indication: NEURALGIA
     Dosage: 900 MILLIGRAM DAILY;
     Dates: start: 20150504
  5. GABAPENTIN. [Concomitant]
     Active Substance: GABAPENTIN
     Indication: NEUROPATHY PERIPHERAL
  6. MORPHINE [Concomitant]
     Active Substance: MORPHINE
     Indication: PAIN
     Dosage: 24 MILLIGRAM DAILY;
     Dates: start: 20150605, end: 20150615
  7. NORMAL SALINE [Concomitant]
     Active Substance: SODIUM CHLORIDE
     Indication: PROPHYLAXIS
     Dosage: 3.9 LIT
     Route: 042
     Dates: start: 20150609, end: 20150612
  8. HUMALOG [Concomitant]
     Active Substance: INSULIN LISPRO
     Indication: DIABETES MELLITUS
     Dosage: 12 UNITS/ML
     Route: 058
     Dates: start: 20150505
  9. RITUXIMAB [Suspect]
     Active Substance: RITUXIMAB
     Indication: NON-HODGKIN^S LYMPHOMA REFRACTORY
     Dosage: DAY 1 OF EACH 28 DAY CYCLE
     Route: 042
     Dates: start: 20150609
  10. VITAMIN D [Concomitant]
     Active Substance: CHOLECALCIFEROL
     Indication: NUTRITIONAL SUPPLEMENTATION
     Dosage: 2000 IU (INTERNATIONAL UNIT) DAILY;
     Dates: start: 20150504
  11. MAGNESIUM OXIDE. [Concomitant]
     Active Substance: MAGNESIUM OXIDE
     Indication: BLOOD MAGNESIUM ABNORMAL
     Dosage: 1000 MILLIGRAM DAILY;
     Dates: start: 20150605
  12. PANTOPRAZOLE SODIUM. [Concomitant]
     Active Substance: PANTOPRAZOLE SODIUM
     Indication: GASTROOESOPHAGEAL REFLUX DISEASE
     Dosage: 40 MILLIGRAM DAILY;
     Dates: start: 20150615
  13. MIRTAZAPINE. [Concomitant]
     Active Substance: MIRTAZAPINE
     Indication: ANTIDEPRESSANT THERAPY
     Dosage: 15 MILLIGRAM DAILY;
     Dates: start: 20150615
  14. LORATADINE. [Concomitant]
     Active Substance: LORATADINE
     Indication: HYPERSENSITIVITY
     Dosage: 10 MILLIGRAM DAILY;
     Route: 048
     Dates: start: 20150504
  15. FERROUS SULFATE [Concomitant]
     Active Substance: FERROUS SULFATE\FERROUS SULFATE, DRIED
     Indication: NUTRITIONAL SUPPLEMENTATION
     Dosage: 65 MILLIGRAM DAILY;
     Dates: start: 20150504
  16. THERAGRAN [Concomitant]
     Active Substance: VITAMINS
     Indication: NUTRITIONAL SUPPLEMENTATION
     Dosage: 1 DOSAGE FORMS DAILY;
     Dates: start: 20150504
  17. OXYCODONE [Concomitant]
     Active Substance: OXYCODONE
     Dosage: 45 MILLIGRAM DAILY;
     Dates: start: 20150615
  18. BENDAMUSTINE [Suspect]
     Active Substance: BENDAMUSTINE
     Indication: NON-HODGKIN^S LYMPHOMA REFRACTORY
     Dosage: DAYS 2 AND 3 FOR EACH 28 DAY CYCLE
     Route: 042
     Dates: start: 20150610
  19. ALLOPURINOL. [Concomitant]
     Active Substance: ALLOPURINOL
     Indication: BLOOD URIC ACID INCREASED
     Dosage: 300 MILLIGRAM DAILY;
     Route: 048
     Dates: start: 20150601, end: 20150602
  20. ZOFRAN [Concomitant]
     Active Substance: ONDANSETRON HYDROCHLORIDE
     Indication: VOMITING
  21. LANTUS [Concomitant]
     Active Substance: INSULIN GLARGINE
     Indication: DIABETES MELLITUS
     Dosage: 16 IU (INTERNATIONAL UNIT) DAILY;
     Route: 058
     Dates: start: 20150504
  22. ZOFRAN [Concomitant]
     Active Substance: ONDANSETRON HYDROCHLORIDE
     Indication: NAUSEA
     Dosage: 24 MILLIGRAM DAILY;
     Dates: start: 20150507
  23. SENNOSIDES DOCUSATE [Concomitant]
     Indication: CONSTIPATION
     Dosage: 2 DOSAGE FORMS DAILY;
     Route: 048
     Dates: start: 20150605
  24. ALLOPURINOL. [Concomitant]
     Active Substance: ALLOPURINOL
     Indication: PROPHYLAXIS
     Route: 048
     Dates: start: 20150602, end: 20150702
  25. OXYCODONE [Concomitant]
     Active Substance: OXYCODONE
     Indication: PAIN
     Dosage: 30 MILLIGRAM DAILY;
     Dates: start: 20150504

REACTIONS (3)
  - Mental status changes [Unknown]
  - Malignant neoplasm progression [Fatal]
  - Subdural haematoma [Unknown]

NARRATIVE: CASE EVENT DATE: 20150622
